FAERS Safety Report 16930584 (Version 1)
Quarter: 2019Q4

REPORT INFORMATION
  Report Type: Spontaneous
  Country: IN (occurrence: IN)
  Receive Date: 20191017
  Receipt Date: 20191017
  Transmission Date: 20200122
  Serious: Yes (Other)
  Sender: FDA-Public Use
  Company Number: IN-ELI_LILLY_AND_COMPANY-IN201910005421

PATIENT
  Age: 45 Year
  Sex: Male

DRUGS (3)
  1. VITAMIN D [COLECALCIFEROL] [Concomitant]
     Active Substance: CHOLECALCIFEROL
     Indication: FEMORAL NECK FRACTURE
     Dosage: UNK, UNKNOWN
     Route: 065
  2. TERIPARATIDE [Suspect]
     Active Substance: TERIPARATIDE
     Indication: FEMORAL NECK FRACTURE
     Dosage: 20 UG, DAILY
     Route: 065
  3. CALCIUM [Concomitant]
     Active Substance: CALCIUM
     Indication: FEMORAL NECK FRACTURE
     Dosage: UNK, UNKNOWN
     Route: 065

REACTIONS (2)
  - Hypophosphataemic osteomalacia [Recovering/Resolving]
  - Off label use [Unknown]
